FAERS Safety Report 22120975 (Version 1)
Quarter: 2023Q1

REPORT INFORMATION
  Report Type: Spontaneous
  Country: US (occurrence: US)
  Receive Date: 20230321
  Receipt Date: 20230321
  Transmission Date: 20230417
  Serious: Yes (Other)
  Sender: FDA-Public Use
  Company Number: US-PFIZER INC-2021008061

PATIENT
  Age: 65 Year

DRUGS (1)
  1. CHANTIX [Suspect]
     Active Substance: VARENICLINE TARTRATE
     Indication: Tobacco user
     Dosage: 1 TABLET BY MOUTH TWICE A DAY
     Route: 048

REACTIONS (1)
  - Hand fracture [Unknown]
